FAERS Safety Report 4454424-7 (Version None)
Quarter: 2004Q3

REPORT INFORMATION
  Report Type: 
  Country: None (occurrence: None)
  Receive Date: 20040826
  Receipt Date: 20040716
  Transmission Date: 20050211
  Serious: No
  Sender: FDA-Public Use
  Company Number: WAES 0407USA01445

PATIENT
  Age: 78 Year
  Sex: Female

DRUGS (6)
  1. ZETIA [Suspect]
     Indication: BLOOD CHOLESTEROL INCREASED
     Dosage: 10MG/DAILY/PO
     Route: 048
     Dates: start: 20040201
  2. COUMADIN [Concomitant]
  3. DIOVAN [Concomitant]
  4. HYDRODIURIL [Concomitant]
  5. NORVASC [Concomitant]
  6. TOPROL-XL [Concomitant]

REACTIONS (1)
  - BLOOD CHOLESTEROL INCREASED [None]
